FAERS Safety Report 5468804-4 (Version None)
Quarter: 2007Q3

REPORT INFORMATION
  Report Type: 
  Country: None (occurrence: None)
  Receive Date: 20070926
  Receipt Date: 20070913
  Transmission Date: 20080115
  Serious: Yes (Other)
  Sender: FDA-Public Use
  Company Number: KR-BOEHRINGER INGELHEIM PHARMACEUTICALS, INC.-2007-BP-21657GL

PATIENT
  Sex: Female

DRUGS (4)
  1. TELMISARTAN [Suspect]
     Route: 065
     Dates: start: 20070810
  2. DIABETES MEDICATION [Concomitant]
     Indication: DIABETES MELLITUS
     Dates: start: 19950501
  3. GLIMEPIRIDE [Concomitant]
  4. METFORMIN HYDROCHLORIDE [Concomitant]

REACTIONS (3)
  - CATARACT [None]
  - CONJUNCTIVAL HAEMORRHAGE [None]
  - DIABETIC RETINOPATHY [None]
